FAERS Safety Report 20114061 (Version 2)
Quarter: 2021Q4

REPORT INFORMATION
  Report Type: Spontaneous
  Country: US (occurrence: US)
  Receive Date: 20211125
  Receipt Date: 20211207
  Transmission Date: 20220303
  Serious: Yes (Other)
  Sender: FDA-Public Use
  Company Number: US-TEVA-2021-US-1979989

PATIENT
  Age: 87 Year
  Sex: Female

DRUGS (3)
  1. AMIODARONE [Interacting]
     Active Substance: AMIODARONE
     Indication: Atrial fibrillation
     Dosage: 600 MILLIGRAM DAILY;
     Route: 065
  2. DIGOXIN [Interacting]
     Active Substance: DIGOXIN
     Indication: Atrial fibrillation
     Dosage: .125 MILLIGRAM DAILY;
     Route: 065
  3. DIGOXIN [Interacting]
     Active Substance: DIGOXIN
     Dosage: .25 MILLIGRAM DAILY;
     Route: 065

REACTIONS (4)
  - Confusional state [Recovered/Resolved]
  - Retinal toxicity [Recovered/Resolved]
  - Toxicity to various agents [Recovered/Resolved]
  - Drug interaction [Unknown]
